FAERS Safety Report 23040636 (Version 3)
Quarter: 2023Q4

REPORT INFORMATION
  Report Type: Report from Study
  Country: US (occurrence: US)
  Receive Date: 20231006
  Receipt Date: 20231102
  Transmission Date: 20240110
  Serious: No
  Sender: FDA-Public Use
  Company Number: US-002147023-NVSC2023US211188

PATIENT
  Sex: Female

DRUGS (1)
  1. KISQALI [Suspect]
     Active Substance: RIBOCICLIB
     Indication: Product used for unknown indication
     Dosage: UNK
     Route: 048

REACTIONS (7)
  - Fatigue [Unknown]
  - Illness [Unknown]
  - Pain [Unknown]
  - Blood iron decreased [Recovered/Resolved with Sequelae]
  - Vitamin C decreased [Unknown]
  - Vitamin D deficiency [Unknown]
  - Nausea [Unknown]
